FAERS Safety Report 6902303-5 (Version None)
Quarter: 2010Q3

REPORT INFORMATION
  Report Type: 
  Country: None (occurrence: None)
  Receive Date: 20100803
  Receipt Date: 20080512
  Transmission Date: 20110219
  Serious: Yes (Other)
  Sender: FDA-Public Use
  Company Number: US-PFIZER INC-2008026174

PATIENT
  Age: 87 Year
  Sex: Female
  Weight: 55.8 kg

DRUGS (3)
  1. LYRICA [Suspect]
  2. DILAUDID [Suspect]
  3. FENTANYL CITRATE [Suspect]

REACTIONS (6)
  - DELUSION [None]
  - DYSARTHRIA [None]
  - DYSKINESIA [None]
  - HALLUCINATION [None]
  - OVERDOSE [None]
  - SLEEP DISORDER [None]
